FAERS Safety Report 9308265 (Version 1)
Quarter: 2013Q2

REPORT INFORMATION
  Report Type: Report from Study
  Country: BR (occurrence: BR)
  Receive Date: 20130524
  Receipt Date: 20130524
  Transmission Date: 20140414
  Serious: Yes (Other)
  Sender: FDA-Public Use
  Company Number: BR-ABBOTT-13P-020-1094215-00

PATIENT
  Age: 51 Year
  Sex: Female
  Weight: 78 kg

DRUGS (6)
  1. HUMIRA [Suspect]
     Indication: RHEUMATOID ARTHRITIS
     Route: 058
     Dates: start: 20100203
  2. OMEPRAZOLE [Concomitant]
     Indication: GASTRIC DISORDER
     Route: 048
     Dates: start: 2009
  3. AMLODIPINE [Concomitant]
     Indication: BLOOD PRESSURE ABNORMAL
     Route: 048
     Dates: start: 2009
  4. LOSARTAN [Concomitant]
     Indication: BLOOD PRESSURE ABNORMAL
     Dosage: 2 TABLETS DAILY
     Route: 048
     Dates: start: 2009
  5. PREDNISONE [Concomitant]
     Indication: RHEUMATOID ARTHRITIS
     Route: 048
     Dates: start: 2003
  6. ARAVA [Concomitant]
     Indication: RHEUMATOID ARTHRITIS
     Route: 048
     Dates: start: 2009

REACTIONS (4)
  - Bone erosion [Unknown]
  - Bone erosion [Unknown]
  - Spinal osteoarthritis [Recovered/Resolved]
  - Pain in extremity [Unknown]
